FAERS Safety Report 9697485 (Version 1)
Quarter: 2013Q4

REPORT INFORMATION
  Report Type: Report from Study
  Country: AR (occurrence: AR)
  Receive Date: 20131120
  Receipt Date: 20131120
  Transmission Date: 20140711
  Serious: Yes (Death)
  Sender: FDA-Public Use
  Company Number: PHHY2013AR131836

PATIENT
  Age: 47 Year
  Sex: Male

DRUGS (3)
  1. GILENYA [Suspect]
     Indication: MULTIPLE SCLEROSIS
     Dosage: 1 DF, QD
     Route: 048
     Dates: start: 201209
  2. GILENYA [Suspect]
     Dosage: 1 DF, QD
     Route: 048
  3. CORTICOSTEROIDS [Concomitant]

REACTIONS (1)
  - Brain neoplasm [Fatal]
